FAERS Safety Report 20990558 (Version 1)
Quarter: 2022Q2

REPORT INFORMATION
  Report Type: Report from Study
  Country: US (occurrence: US)
  Receive Date: 20220622
  Receipt Date: 20220622
  Transmission Date: 20220721
  Serious: Yes (Hospitalization, Other)
  Sender: FDA-Public Use
  Company Number: US-ABBVIE-22K-163-4430524-00

PATIENT
  Sex: Female
  Weight: 53.118 kg

DRUGS (15)
  1. DUOPA [Suspect]
     Active Substance: CARBIDOPA\LEVODOPA
     Indication: Product used for unknown indication
     Route: 050
     Dates: start: 20201210, end: 20220607
  2. DUOPA [Suspect]
     Active Substance: CARBIDOPA\LEVODOPA
  3. LOTREL [Concomitant]
     Active Substance: AMLODIPINE BESYLATE\BENAZEPRIL HYDROCHLORIDE
     Indication: Product used for unknown indication
     Dosage: 1 CAP
     Route: 048
  4. PAROXETINE [Concomitant]
     Active Substance: PAROXETINE
     Indication: Product used for unknown indication
     Dosage: 1 TAB
     Route: 048
  5. DICLOFENAC [Concomitant]
     Active Substance: DICLOFENAC
     Indication: Product used for unknown indication
     Dosage: 2 GM
     Route: 048
  6. MYRBETRIQ [Concomitant]
     Active Substance: MIRABEGRON
     Indication: Product used for unknown indication
     Dosage: 1 TAB
     Route: 048
  7. TROSPIUM CHLORIDE [Concomitant]
     Active Substance: TROSPIUM CHLORIDE
     Indication: Product used for unknown indication
     Dosage: 1 TAB
     Route: 048
  8. ACETAMINOPHEN [Concomitant]
     Active Substance: ACETAMINOPHEN
     Indication: Product used for unknown indication
     Dosage: 2 TABS
     Route: 048
  9. MIRTAZAPINE [Concomitant]
     Active Substance: MIRTAZAPINE
     Indication: Product used for unknown indication
     Dosage: 0.5 TAB
     Route: 048
  10. UNSPECIFIED INGREDIENT [Concomitant]
     Active Substance: UNSPECIFIED INGREDIENT
     Indication: Constipation prophylaxis
     Dosage: 1 TAB
     Route: 048
  11. PROBIOTICS NOS [Concomitant]
     Active Substance: PROBIOTICS NOS
     Indication: Product used for unknown indication
     Dosage: 1 CAP, 100B
     Route: 048
  12. MELATONIN [Concomitant]
     Active Substance: MELATONIN
     Indication: Product used for unknown indication
     Dosage: 1 CAP
     Route: 048
  13. RYTARY [Concomitant]
     Active Substance: CARBIDOPA\LEVODOPA
     Indication: Product used for unknown indication
     Dosage: 1 CAP
     Route: 048
  14. BENAZEPRIL [Concomitant]
     Active Substance: BENAZEPRIL HYDROCHLORIDE
     Indication: Product used for unknown indication
     Dosage: 1 TAB
     Route: 048
  15. AMANTADINE [Concomitant]
     Active Substance: AMANTADINE
     Indication: Product used for unknown indication
     Dosage: 0.5 TAB
     Route: 048

REACTIONS (7)
  - Appendicectomy [Unknown]
  - Hysterectomy [Unknown]
  - Abdominal pain [Unknown]
  - Intestinal obstruction [Not Recovered/Not Resolved]
  - Diarrhoea [Recovered/Resolved]
  - Procedural pain [Not Recovered/Not Resolved]
  - Complication associated with device [Not Recovered/Not Resolved]

NARRATIVE: CASE EVENT DATE: 20220101
